FAERS Safety Report 9658878 (Version 3)
Quarter: 2014Q4

REPORT INFORMATION
  Report Type: Report from Study
  Country: US (occurrence: US)
  Receive Date: 20131030
  Receipt Date: 20141208
  Transmission Date: 20150529
  Serious: Yes (Death, Hospitalization, Other)
  Sender: FDA-Public Use
  Company Number: US-ALEXION-A201302857

PATIENT

DRUGS (1)
  1. SOLIRIS [Suspect]
     Active Substance: ECULIZUMAB
     Indication: HAEMOLYTIC URAEMIC SYNDROME
     Dosage: 1200 MG, Q2W
     Route: 042
     Dates: start: 20130214

REACTIONS (12)
  - Renal failure [Unknown]
  - Blood lactate dehydrogenase increased [Unknown]
  - Bone marrow disorder [Unknown]
  - T-cell lymphoma [Not Recovered/Not Resolved]
  - Blood creatinine increased [Unknown]
  - Unevaluable event [Unknown]
  - Platelet count decreased [Unknown]
  - Death [Fatal]
  - Haemodialysis [Unknown]
  - Haemoglobin decreased [Unknown]
  - Pyrexia [Not Recovered/Not Resolved]
  - Hypertension [Unknown]

NARRATIVE: CASE EVENT DATE: 20131022
